FAERS Safety Report 15425025 (Version 2)
Quarter: 2018Q4

REPORT INFORMATION
  Report Type: Spontaneous
  Country: US (occurrence: US)
  Receive Date: 20180925
  Receipt Date: 20181221
  Transmission Date: 20190204
  Serious: No
  Sender: FDA-Public Use
  Company Number: US-THERAPEUTICSMD-2018TMD00097

PATIENT
  Sex: Female
  Weight: 76.19 kg

DRUGS (2)
  1. PLAQUENIL [Concomitant]
     Active Substance: HYDROXYCHLOROQUINE SULFATE
  2. IMVEXXY [Suspect]
     Active Substance: ESTRADIOL
     Indication: ATROPHIC VULVOVAGINITIS
     Dosage: UNK AT BEDTIME, JUST PRIOR TO BECOMING RECUMBENT
     Route: 067
     Dates: start: 2018, end: 2018

REACTIONS (1)
  - Vulvovaginal discomfort [Unknown]

NARRATIVE: CASE EVENT DATE: 2018
